FAERS Safety Report 9312860 (Version 1)
Quarter: 2013Q2

REPORT INFORMATION
  Report Type: Spontaneous
  Country: US (occurrence: US)
  Receive Date: 20130528
  Receipt Date: 20130528
  Transmission Date: 20140414
  Serious: No
  Sender: FDA-Public Use
  Company Number: US-ASTRAZENECA-2013SE34771

PATIENT
  Age: 68 Year
  Sex: Male
  Weight: 102.5 kg

DRUGS (4)
  1. SYMBICORT [Suspect]
     Indication: CHRONIC OBSTRUCTIVE PULMONARY DISEASE
     Dosage: 320 MCG BID
     Route: 055
     Dates: start: 20130515
  2. SYMBICORT [Suspect]
     Indication: CHRONIC OBSTRUCTIVE PULMONARY DISEASE
     Dosage: 160/4.5, 2 PUFFS BID
     Route: 055
     Dates: start: 20130515
  3. SPIRIVA [Concomitant]
  4. PREDNISONE [Concomitant]

REACTIONS (3)
  - Dysphagia [Unknown]
  - Throat irritation [Unknown]
  - Oropharyngeal pain [Unknown]
